FAERS Safety Report 17521118 (Version 1)
Quarter: 2020Q1

REPORT INFORMATION
  Report Type: Spontaneous
  Country: US (occurrence: US)
  Receive Date: 20200310
  Receipt Date: 20200310
  Transmission Date: 20200409
  Serious: Yes (Death)
  Sender: FDA-Public Use
  Company Number: None

PATIENT
  Age: 12 Year
  Sex: Female

DRUGS (1)
  1. TISAGENLECLEUCEL. [Suspect]
     Active Substance: TISAGENLECLEUCEL
     Indication: ACUTE LYMPHOCYTIC LEUKAEMIA
     Dosage: ?          OTHER FREQUENCY:ONCE;?
     Route: 042
     Dates: start: 20191010, end: 20191010

REACTIONS (6)
  - Hepatic failure [None]
  - Multiple organ dysfunction syndrome [None]
  - Metabolic acidosis [None]
  - Acute kidney injury [None]
  - Cytokine release syndrome [None]
  - Hyperammonaemia [None]

NARRATIVE: CASE EVENT DATE: 20191010
